FAERS Safety Report 20862501 (Version 1)
Quarter: 2022Q2

REPORT INFORMATION
  Report Type: Spontaneous
  Country: US (occurrence: None)
  Receive Date: 20220523
  Receipt Date: 20220523
  Transmission Date: 20220720
  Serious: Yes (Life-Threatening)
  Sender: FDA-Public Use
  Company Number: None

PATIENT
  Age: 77 Year
  Sex: Male
  Weight: 91 kg

DRUGS (3)
  1. CEFAZOLIN [Suspect]
     Active Substance: CEFAZOLIN
     Indication: Vascular operation
     Dosage: OTHER STRENGTH : 1GM/VIL;?
     Dates: start: 20220421, end: 20220421
  2. CEFAZOLIN [Suspect]
     Active Substance: CEFAZOLIN
     Indication: Intraoperative care
  3. MIDAZOLAM [Suspect]
     Active Substance: MIDAZOLAM
     Indication: Vascular operation
     Dosage: OTHER STRENGTH : 1MG/ML/NACL 0.9%, ;?
     Dates: start: 20220421, end: 20220421

REACTIONS (8)
  - Dyspnoea [None]
  - Oxygen saturation decreased [None]
  - Hyperhidrosis [None]
  - Wheezing [None]
  - Agitation [None]
  - Procedure aborted [None]
  - Anaphylactic reaction [None]
  - Cough [None]

NARRATIVE: CASE EVENT DATE: 20220421
